FAERS Safety Report 11277204 (Version 1)
Quarter: 2015Q3

REPORT INFORMATION
  Report Type: Other
  Country: GB (occurrence: GB)
  Receive Date: 20150716
  Receipt Date: 20150716
  Transmission Date: 20151125
  Serious: Yes (Other)
  Sender: FDA-Public Use
  Company Number: GB-MYLANLABS-2015M1022658

PATIENT

DRUGS (5)
  1. COAL TAR. [Concomitant]
     Active Substance: COAL TAR
     Dosage: USE AS DIRECTED.
     Dates: start: 20120718
  2. NUTRITION 12 [Concomitant]
     Active Substance: IRON\MINERALS\VITAMINS
     Dosage: USED TO ENSURE ADEQUATE CALORIE INTAKE WHEN UNWELL.
     Dates: start: 20140506
  3. MONTELUKAST [Suspect]
     Active Substance: MONTELUKAST SODIUM
     Dosage: UNK
     Dates: start: 20150514
  4. SALBUTAMOL [Concomitant]
     Active Substance: ALBUTEROL
     Dosage: 2 DF, UNK
     Route: 055
     Dates: start: 20140506
  5. SERETIDE [Concomitant]
     Active Substance: FLUTICASONE FUROATE\SALMETEROL XINAFOATE
     Dosage: 2 DF, BID
     Dates: start: 20141024

REACTIONS (3)
  - Tearfulness [Recovered/Resolved]
  - Depression [Recovered/Resolved]
  - Abnormal dreams [Recovered/Resolved]

NARRATIVE: CASE EVENT DATE: 20150619
